FAERS Safety Report 11865806 (Version 1)
Quarter: 2015Q4

REPORT INFORMATION
  Report Type: Report from Study
  Country: ES (occurrence: ES)
  Receive Date: 20151223
  Receipt Date: 20151223
  Transmission Date: 20160305
  Serious: Yes (Other)
  Sender: FDA-Public Use
  Company Number: ES-MYLANLABS-2015M1046648

PATIENT

DRUGS (2)
  1. THIORIDAZINE [Suspect]
     Active Substance: THIORIDAZINE
     Indication: DEMENTIA
     Dosage: 70MG
     Route: 048
  2. ANTI-PARKINSON [Concomitant]
     Indication: PARKINSON^S DISEASE
     Route: 065

REACTIONS (1)
  - Hepatitis [Recovering/Resolving]
